FAERS Safety Report 13679265 (Version 1)
Quarter: 2017Q2

REPORT INFORMATION
  Report Type: Spontaneous
  Country: US (occurrence: US)
  Receive Date: 20170622
  Receipt Date: 20170622
  Transmission Date: 20170830
  Serious: No
  Sender: FDA-Public Use
  Company Number: US-BAYER-2017-121202

PATIENT
  Age: 62 Year
  Sex: Male

DRUGS (1)
  1. MIRALAX [Suspect]
     Active Substance: POLYETHYLENE GLYCOL 3350
     Dosage: 1/2 OF A 14 DAILY DOSE BOTTLE MIXED WITH 32OZ GATORADE,BID
     Route: 048
     Dates: start: 20170622

REACTIONS (3)
  - Product use issue [None]
  - Product use in unapproved indication [Unknown]
  - Off label use [Unknown]

NARRATIVE: CASE EVENT DATE: 20170622
